FAERS Safety Report 5927401-4 (Version None)
Quarter: 2008Q4

REPORT INFORMATION
  Report Type: 
  Country: None (occurrence: None)
  Receive Date: 20081022
  Receipt Date: 20081022
  Transmission Date: 20090506
  Serious: No
  Sender: FDA-Public Use
  Company Number: None

PATIENT
  Sex: Female
  Weight: 53.5244 kg

DRUGS (1)
  1. ACTONEL [Suspect]
     Indication: PAIN
     Dosage: 1 MONTH TAB
     Dates: start: 20081008

REACTIONS (4)
  - BONE PAIN [None]
  - CHEST DISCOMFORT [None]
  - FEELING ABNORMAL [None]
  - PAIN IN EXTREMITY [None]
